FAERS Safety Report 5254407-3 (Version None)
Quarter: 2007Q1

REPORT INFORMATION
  Report Type: 
  Country: None (occurrence: None)
  Receive Date: 20070302
  Receipt Date: 20070227
  Transmission Date: 20070707
  Serious: Yes (Hospitalization)
  Sender: FDA-Public Use
  Company Number: US-ROXANE LABORATORIES, INC-2007-DE-01225GD

PATIENT
  Age: 82 Year
  Sex: Female

DRUGS (7)
  1. HYDROCHLOROTHIAZIDE [Suspect]
     Indication: HYPERTENSION
  2. BUDESONIDE [Concomitant]
     Route: 055
  3. OXYCODONE AND ACETAMINOPHEN [Concomitant]
  4. AMLODIPINE [Concomitant]
     Indication: HYPERTENSION
  5. VALSARTAN [Concomitant]
  6. ATORVASTATIN [Concomitant]
  7. ALBUTEROL [Concomitant]
     Route: 055

REACTIONS (5)
  - ANGIOEDEMA [None]
  - DYSPHAGIA [None]
  - DYSPNOEA [None]
  - GOUT [None]
  - RASH [None]
